FAERS Safety Report 19169245 (Version 6)
Quarter: 2021Q3

REPORT INFORMATION
  Report Type: Spontaneous
  Country: US (occurrence: US)
  Receive Date: 20210422
  Receipt Date: 20210828
  Transmission Date: 20211014
  Serious: No
  Sender: FDA-Public Use
  Company Number: NVSC2021US091096

PATIENT
  Age: 36 Year
  Sex: Female

DRUGS (4)
  1. COSENTYX [Suspect]
     Active Substance: SECUKINUMAB
     Indication: PSORIASIS
     Dosage: 300 MG, Q WEEK FOR FIVE WEEKS AND THEN Q FOUR
     Route: 058
     Dates: start: 20210428
  2. COSENTYX [Suspect]
     Active Substance: SECUKINUMAB
     Dosage: 300 MG, QMO
     Route: 058
     Dates: start: 20210628
  3. COSENTYX [Suspect]
     Active Substance: SECUKINUMAB
     Dosage: 300 MG, QMO
     Route: 058
     Dates: start: 202101
  4. COSENTYX [Suspect]
     Active Substance: SECUKINUMAB
     Route: 058
     Dates: start: 20210428

REACTIONS (10)
  - Fatigue [Unknown]
  - Rash [Unknown]
  - Headache [Unknown]
  - Oropharyngeal pain [Unknown]
  - Peripheral swelling [Unknown]
  - Psoriasis [Unknown]
  - Pruritus [Recovering/Resolving]
  - COVID-19 [Unknown]
  - Urticaria [Unknown]
  - Dry skin [Unknown]

NARRATIVE: CASE EVENT DATE: 20210623
